FAERS Safety Report 7421007-6 (Version None)
Quarter: 2011Q2

REPORT INFORMATION
  Report Type: 
  Country: None (occurrence: None)
  Receive Date: 20110408
  Receipt Date: 20110325
  Transmission Date: 20111010
  Serious: Yes (Other)
  Sender: FDA-Public Use
  Company Number: 2011AT000053

PATIENT
  Age: 81 Year
  Sex: Male

DRUGS (1)
  1. PROSTAVASIN (ALPROSTADIL) [Suspect]
     Indication: PRODUCT USED FOR UNKNOWN INDICATION

REACTIONS (7)
  - URETHRAL STENOSIS [None]
  - URINARY RETENTION [None]
  - PULMONARY CONGESTION [None]
  - TRICUSPID VALVE INCOMPETENCE [None]
  - HAEMATURIA [None]
  - URINARY TRACT INFECTION [None]
  - CARDIAC FAILURE [None]
